FAERS Safety Report 13995627 (Version 2)
Quarter: 2017Q3

REPORT INFORMATION
  Report Type: Spontaneous
  Country: US (occurrence: US)
  Receive Date: 20170921
  Receipt Date: 20170922
  Transmission Date: 20171128
  Serious: No
  Sender: FDA-Public Use
  Company Number: US-PFIZER INC-2017407477

PATIENT
  Age: 55 Year
  Sex: Female
  Weight: 83 kg

DRUGS (21)
  1. LYRICA [Suspect]
     Active Substance: PREGABALIN
     Indication: FIBROMYALGIA
     Dosage: UNK, 2X/DAY
     Route: 048
  2. FLONASE [Concomitant]
     Active Substance: FLUTICASONE PROPIONATE
     Dosage: 50 MCG/ACTUATION NASAL SPRAY, SUSPENSION; SPRAY 1 SPRAY(S) EVERY DAY BY INTRANASAL ROUTE
     Route: 045
  3. TRAZODONE [Concomitant]
     Active Substance: TRAZODONE HYDROCHLORIDE
     Dosage: 150 MG, 1X/DAY AT BEDTIME, AS NEEDED
  4. OXYCODONE [Concomitant]
     Active Substance: OXYCODONE
     Indication: MUSCULOSKELETAL STIFFNESS
     Dosage: UNK, 4X/DAY
  5. DICYCLOMINE [Concomitant]
     Active Substance: DICYCLOMINE HYDROCHLORIDE
     Dosage: 20 MG, UNK
  6. GABAPENTIN. [Concomitant]
     Active Substance: GABAPENTIN
     Dosage: 600 MG, 3X/DAY
  7. TRAMADOL. [Concomitant]
     Active Substance: TRAMADOL
     Indication: PAIN
     Dosage: 50 MG TABLET TAKE 1 TO 2 TABLETS EVERY 8 HOURS AS NEEDED
  8. COSENTYX [Concomitant]
     Active Substance: SECUKINUMAB
     Dosage: 150 MG, WEEKLY
  9. METFORMIN [Concomitant]
     Active Substance: METFORMIN HYDROCHLORIDE
     Dosage: 1000 MG, UNK
  10. OXYCODONE-ACETAMINOPHEN [Concomitant]
     Active Substance: ACETAMINOPHEN\OXYCODONE HYDROCHLORIDE
     Indication: PAIN
     Dosage: [OXYCODONE HYDROCHLORIDE 5 MG/PARACETAMOL 325 MG], AS NEEDED (Q8H PRN)
     Route: 048
  11. PANTOPRAZOLE [Concomitant]
     Active Substance: PANTOPRAZOLE
     Dosage: 40 MG, UNK
  12. CITALOPRAM [Concomitant]
     Active Substance: CITALOPRAM HYDROBROMIDE
     Dosage: 20 MG, DAILY [TAKE 1 TABLET(S) EVERY DAY]
     Route: 048
  13. ESOMEPRAZOLE MAGNESIUM. [Concomitant]
     Active Substance: ESOMEPRAZOLE MAGNESIUM
     Dosage: 40 MG, UNK
  14. GABAPENTIN. [Concomitant]
     Active Substance: GABAPENTIN
     Indication: FIBROMYALGIA
     Dosage: 600 MG TABLET FIVE TIMES DAILY
  15. TEMAZEPAM. [Concomitant]
     Active Substance: TEMAZEPAM
     Dosage: 15 MG, EVERY DAY AT BEDTIME AS NEEDED
     Route: 048
  16. OXYCODONE [Concomitant]
     Active Substance: OXYCODONE
     Indication: OSTEOARTHRITIS
     Dosage: UNK UNK, AS NEEDED
  17. COSENTYX [Concomitant]
     Active Substance: SECUKINUMAB
     Indication: PSORIATIC ARTHROPATHY
     Dosage: 1 ML, UNK (INJECT 1 ML EVERY 4 WEEKS-150 MG WEEKLY AND IS SWITCHING OVER TO MONTHLY)
     Route: 058
  18. ESTRADIOL. [Concomitant]
     Active Substance: ESTRADIOL
     Dosage: 0.75 MG, DAILY (TAKE 1.5 TABLETS DAILY)
  19. LYRICA [Suspect]
     Active Substance: PREGABALIN
     Dosage: 100 MG, 3X/DAY
     Route: 048
  20. CLOBETASOL [Concomitant]
     Active Substance: CLOBETASOL
     Indication: PSORIASIS
     Dosage: UNK, 2X/DAY [APPLY BY TOPICAL ROUTE 2 TIMES EVERY DAY A THIN LAYER TO THE AFFECTED AREA(S)]
     Route: 061
  21. SULFAMETHOXAZOLE-TRIMETHOPRIM [Concomitant]
     Active Substance: SULFAMETHOXAZOLE\TRIMETHOPRIM
     Dosage: [SULFAMETHOXAZOLE 800 MG/ TRIMETHOPRIM 160 MG], UNK

REACTIONS (1)
  - Malaise [Unknown]
